FAERS Safety Report 5486662-9 (Version None)
Quarter: 2007Q3

REPORT INFORMATION
  Report Type: 
  Country: None (occurrence: None)
  Receive Date: 20070925
  Receipt Date: 20070824
  Transmission Date: 20080115
  Serious: No
  Sender: FDA-Public Use
  Company Number: 2007US001006

PATIENT
  Age: 64 Year
  Sex: Male

DRUGS (16)
  1. VESICARE [Suspect]
     Indication: HYPERTONIC BLADDER
     Dosage: 5 MG, UID/QD, ORAL
     Route: 048
     Dates: start: 20060622, end: 20061205
  2. ELMIRON [Concomitant]
  3. OMEPRAZOLE [Concomitant]
  4. VENLAFAXINE HCL [Concomitant]
  5. METFORMIN (METFORMIN HYDROCHLORIDE) [Concomitant]
  6. METOPROLOL TARTRATE [Concomitant]
  7. ASPIRIN [Concomitant]
  8. LYRICA [Concomitant]
  9. REQUIP [Concomitant]
  10. TRUSOPT [Concomitant]
  11. BRIMONIDINE TARTRATE [Concomitant]
  12. CHOLESTYRAMINE RESIN (COLESTYRAMNE) [Concomitant]
  13. ZOCOR [Concomitant]
  14. IMIPRAMINE [Concomitant]
  15. NITROGLYCERIN [Concomitant]
  16. GLYBURIDE [Concomitant]

REACTIONS (8)
  - CONSTIPATION [None]
  - DRUG INEFFECTIVE [None]
  - DRY MOUTH [None]
  - DYSPEPSIA [None]
  - GLAUCOMA [None]
  - HALLUCINATION [None]
  - STOMACH DISCOMFORT [None]
  - VISION BLURRED [None]
